FAERS Safety Report 25417716 (Version 1)
Quarter: 2025Q2

REPORT INFORMATION
  Report Type: Spontaneous
  Country: US (occurrence: None)
  Receive Date: 20250609
  Receipt Date: 20250609
  Transmission Date: 20250717
  Serious: No
  Sender: FDA-CTU
  Company Number: None

PATIENT
  Age: 14 Year
  Sex: Female
  Weight: 69.9 kg

DRUGS (2)
  1. GAMUNEX-C [Suspect]
     Active Substance: HUMAN IMMUNOGLOBULIN G
     Indication: Optic neuritis
     Route: 042
     Dates: start: 20250529, end: 20250529
  2. GAMUNEX-C [Suspect]
     Active Substance: HUMAN IMMUNOGLOBULIN G
     Indication: Optic neuritis
     Route: 042
     Dates: start: 20250529, end: 20250529

REACTIONS (3)
  - Pruritus [None]
  - Urticaria [None]
  - Infusion related reaction [None]

NARRATIVE: CASE EVENT DATE: 20250529
